FAERS Safety Report 16766216 (Version 1)
Quarter: 2019Q4

REPORT INFORMATION
  Report Type: Spontaneous
  Country: US (occurrence: US)
  Receive Date: 20190830
  Receipt Date: 20190830
  Transmission Date: 20200122
  Serious: Yes (Disabling)
  Sender: FDA-Public Use
  Company Number: None

PATIENT
  Age: 64 Year
  Sex: Male
  Weight: 103.5 kg

DRUGS (1)
  1. LIOTHYRONINE SODIUM 5MCG TAB [Suspect]
     Active Substance: LIOTHYRONINE SODIUM
     Indication: AUTOIMMUNE THYROIDITIS
     Dosage: ?          OTHER STRENGTH:MCG;QUANTITY:2 TABLET(S);?
     Route: 048
     Dates: start: 20190816

REACTIONS (2)
  - Fatigue [None]
  - Heart rate increased [None]

NARRATIVE: CASE EVENT DATE: 20190816
